FAERS Safety Report 9098546 (Version 1)
Quarter: 2013Q1

REPORT INFORMATION
  Report Type: Spontaneous
  Country: FR (occurrence: FR)
  Receive Date: 20130213
  Receipt Date: 20130213
  Transmission Date: 20140127
  Serious: Yes (Hospitalization)
  Sender: FDA-Public Use
  Company Number: FR-ASTRAZENECA-2013SE09365

PATIENT
  Age: 26145 Day
  Sex: Female

DRUGS (7)
  1. INEXIUM [Suspect]
     Indication: GASTRIC ULCER
     Route: 048
  2. EFFERALGAN [Suspect]
     Indication: MYALGIA
     Route: 048
     Dates: start: 20120912, end: 20120913
  3. TOPALGIC [Suspect]
     Indication: MYALGIA
     Route: 048
     Dates: start: 20120913, end: 20120919
  4. IXPRIM [Suspect]
     Indication: MYALGIA
     Route: 048
     Dates: start: 20120912, end: 20120913
  5. ARIXTRA [Concomitant]
     Indication: PROPHYLAXIS
     Route: 058
     Dates: start: 20120913, end: 20120925
  6. LASILIX [Concomitant]
     Indication: CARDIOMYOPATHY
     Route: 048
  7. LEXOMIL [Concomitant]
     Indication: SLEEP DISORDER
     Route: 048

REACTIONS (6)
  - Liver injury [Recovered/Resolved]
  - Inflammation [Recovering/Resolving]
  - Pyrexia [Recovered/Resolved]
  - Muscle rupture [Unknown]
  - Nausea [Recovered/Resolved]
  - Vomiting [Recovered/Resolved]
